FAERS Safety Report 8042994-1 (Version None)
Quarter: 2012Q1

REPORT INFORMATION
  Report Type: 
  Country: None (occurrence: None)
  Receive Date: 20120112
  Receipt Date: 20120109
  Transmission Date: 20120608
  Serious: Yes (Other)
  Sender: FDA-Public Use
  Company Number: PHFR2011IE04559

PATIENT
  Sex: Male

DRUGS (7)
  1. MULTI-VITAMINS [Suspect]
  2. ESCITALOPRAM [Concomitant]
     Indication: AFFECTIVE DISORDER
     Dosage: 25 MG/DAY
     Route: 048
     Dates: start: 20100101
  3. LAMOTRIGINE [Concomitant]
     Indication: AFFECTIVE DISORDER
     Dosage: 275 MG/DAY
     Route: 048
     Dates: start: 20040101
  4. LIPITOR [Concomitant]
     Indication: BLOOD CHOLESTEROL INCREASED
     Dosage: 20 MG/DAY
     Route: 048
     Dates: start: 20080101
  5. GLUCOPHAGE [Concomitant]
     Indication: TYPE 2 DIABETES MELLITUS
     Dosage: 1000 MG/DAY
     Route: 048
     Dates: start: 20080101
  6. CLOZARIL [Suspect]
     Indication: SCHIZOPHRENIA
     Dosage: 400 MG/DAY
     Route: 048
     Dates: start: 20051004
  7. RISPERIDONE [Concomitant]
     Indication: SCHIZOPHRENIA
     Dosage: 3 MG/DAY
     Route: 048
     Dates: start: 20100301

REACTIONS (7)
  - HYPERCHOLESTEROLAEMIA [None]
  - HYPERTENSION [None]
  - MICROCYTOSIS [None]
  - SERUM FERRITIN DECREASED [None]
  - BLOOD IRON DECREASED [None]
  - MEAN CELL VOLUME DECREASED [None]
  - TYPE 2 DIABETES MELLITUS [None]
